FAERS Safety Report 8715882 (Version 3)
Quarter: 2012Q4

REPORT INFORMATION
  Report Type: 
  Country: US (occurrence: US)
  Receive Date: 20120809
  Receipt Date: 20121003
  Transmission Date: 20130627
  Serious: Yes (Hospitalization, Other)
  Sender: FDA-Public Use
  Company Number: US-PFIZER INC-2012192695

PATIENT
  Age: 71 Year
  Sex: Female
  Weight: 65.76 kg

DRUGS (1)
  1. EFFEXOR XR [Suspect]
     Dosage: 37.5 mg, 1x/day (once)
     Route: 048
     Dates: start: 20120627, end: 20120627

REACTIONS (2)
  - Appendicitis [Recovered/Resolved]
  - White blood cell count increased [Unknown]
